FAERS Safety Report 9916514 (Version 3)
Quarter: 2014Q1

REPORT INFORMATION
  Report Type: Spontaneous
  Country: JP (occurrence: JP)
  Receive Date: 20140221
  Receipt Date: 20140307
  Transmission Date: 20141002
  Serious: Yes (Other)
  Sender: FDA-Public Use
  Company Number: JP-NOVOPROD-400257

PATIENT
  Age: 32 Year
  Sex: Female

DRUGS (1)
  1. NOVORAPID CHU [Suspect]
     Indication: GESTATIONAL DIABETES
     Dosage: 3 U, TID (3 UNITS BEFORE EACH MEAL)
     Route: 058
     Dates: start: 201307

REACTIONS (3)
  - Preterm premature rupture of membranes [Unknown]
  - Premature delivery [Unknown]
  - Exposure during pregnancy [Recovered/Resolved]
